FAERS Safety Report 16460182 (Version 1)
Quarter: 2019Q2

REPORT INFORMATION
  Report Type: Spontaneous
  Country: ES (occurrence: ES)
  Receive Date: 20190620
  Receipt Date: 20190620
  Transmission Date: 20190711
  Serious: Yes (Disabling)
  Sender: FDA-Public Use
  Company Number: ES-PFIZER INC-2019255357

PATIENT
  Age: 19 Year
  Sex: Male
  Weight: 53 kg

DRUGS (2)
  1. GENOTONORM MINIQUICK [Suspect]
     Active Substance: SOMATROPIN
     Indication: BLOOD GROWTH HORMONE
     Dosage: UNK (DIFFERENT DOSES IN THE YEARS OF TREATMENT)
     Route: 058
     Dates: start: 20090513, end: 20150325
  2. OMNITROPE [Suspect]
     Active Substance: SOMATROPIN
     Indication: BLOOD GROWTH HORMONE
     Dosage: 0.20 ML, DAILY
     Route: 058
     Dates: start: 20150325, end: 20170209

REACTIONS (1)
  - Spinal cord neoplasm [Not Recovered/Not Resolved]

NARRATIVE: CASE EVENT DATE: 20170101
